FAERS Safety Report 10617055 (Version 1)
Quarter: 2014Q4

REPORT INFORMATION
  Report Type: Spontaneous
  Country: US (occurrence: US)
  Receive Date: 20141201
  Receipt Date: 20141201
  Transmission Date: 20150529
  Serious: Yes (Hospitalization)
  Sender: FDA-Public Use
  Company Number: US-B.I. PHARMACEUTICALS,INC./RIDGEFIELD-2014-BI-56603BP

PATIENT
  Sex: Female
  Weight: 75.29 kg

DRUGS (2)
  1. SPIRIVA [Suspect]
     Active Substance: TIOTROPIUM BROMIDE MONOHYDRATE
     Dosage: MORE THAN 2 INHALATIONS OF 1 CAPSULE
     Route: 055
     Dates: start: 2012
  2. SPIRIVA [Suspect]
     Active Substance: TIOTROPIUM BROMIDE MONOHYDRATE
     Indication: CHRONIC OBSTRUCTIVE PULMONARY DISEASE
     Dosage: 18 MCG
     Route: 055
     Dates: start: 2006

REACTIONS (9)
  - Dyspnoea [Recovered/Resolved]
  - Dyspnoea [Unknown]
  - Off label use [Not Recovered/Not Resolved]
  - Feeling abnormal [Unknown]
  - Full blood count decreased [Recovered/Resolved]
  - Haemorrhage [Unknown]
  - Infection [Unknown]
  - Fluid retention [Unknown]
  - Body temperature increased [Unknown]

NARRATIVE: CASE EVENT DATE: 2012
